FAERS Safety Report 6214838-1 (Version None)
Quarter: 2009Q2

REPORT INFORMATION
  Report Type: 
  Country: None (occurrence: None)
  Receive Date: 20090604
  Receipt Date: 20090528
  Transmission Date: 20091009
  Serious: Yes (Other)
  Sender: FDA-Public Use
  Company Number: US-ROCHE-635583

PATIENT
  Age: 62 Year
  Sex: Female

DRUGS (3)
  1. BONIVA [Suspect]
     Indication: OSTEOPOROSIS
     Route: 048
     Dates: start: 20060101
  2. LOVASTATIN [Concomitant]
  3. VITAMIN [Concomitant]

REACTIONS (1)
  - GLAUCOMA [None]
